FAERS Safety Report 12268077 (Version 4)
Quarter: 2016Q2

REPORT INFORMATION
  Report Type: Spontaneous
  Country: US (occurrence: US)
  Receive Date: 20160414
  Receipt Date: 20160627
  Transmission Date: 20160815
  Serious: Yes (Hospitalization, Other)
  Sender: FDA-Public Use
  Company Number: US-009507513-1203USA00783

PATIENT
  Sex: Female

DRUGS (7)
  1. HYDROCHLOROTHIAZIDE. [Concomitant]
     Active Substance: HYDROCHLOROTHIAZIDE
     Dosage: UNK, UNKNOWN
     Route: 065
     Dates: start: 1996
  2. ALENDRONATE SODIUM. [Suspect]
     Active Substance: ALENDRONATE SODIUM
     Indication: OSTEOPOROSIS
     Dosage: 70 MG, UNK
     Route: 048
     Dates: start: 201010, end: 201109
  3. ESTROPIPATE. [Concomitant]
     Active Substance: ESTROPIPATE
     Indication: HORMONE REPLACEMENT THERAPY
     Dosage: 3 MG, UNKNOWN
     Route: 065
     Dates: start: 1996
  4. FOSAMAX [Suspect]
     Active Substance: ALENDRONATE SODIUM
     Indication: OSTEOPENIA
     Dosage: 70 MG, QW
     Route: 048
     Dates: start: 200602, end: 20080113
  5. PAXIL [Concomitant]
     Active Substance: PAROXETINE HYDROCHLORIDE
     Dosage: 20 MG, UNKNOWN
     Route: 065
     Dates: start: 1996
  6. ATENOLOL. [Concomitant]
     Active Substance: ATENOLOL
     Indication: HYPERTENSION
     Dosage: 25 UNK, UNK
     Route: 065
     Dates: start: 1996
  7. ALENDRONATE SODIUM. [Suspect]
     Active Substance: ALENDRONATE SODIUM
     Indication: OSTEOPOROSIS
     Dosage: 70 MG, QW
     Route: 048
     Dates: start: 200802, end: 201009

REACTIONS (19)
  - Osteoporosis [Unknown]
  - Femur fracture [Recovered/Resolved]
  - Osteomyelitis [Unknown]
  - Muscle atrophy [Unknown]
  - Cartilage injury [Unknown]
  - Bunion operation [Unknown]
  - Chest pain [Unknown]
  - Surgical failure [Unknown]
  - Arthrodesis [Unknown]
  - Medical device removal [Unknown]
  - Bursitis [Unknown]
  - Arthralgia [Unknown]
  - Drug effect decreased [Unknown]
  - Bone cyst [Unknown]
  - Bone deformity [Unknown]
  - Bone cyst [Unknown]
  - Osteoarthritis [Unknown]
  - Spinal osteoarthritis [Unknown]
  - Bursitis [Unknown]

NARRATIVE: CASE EVENT DATE: 2008
